FAERS Safety Report 4898319-3 (Version None)
Quarter: 2006Q1

REPORT INFORMATION
  Report Type: 
  Country: None (occurrence: None)
  Receive Date: 20060127
  Receipt Date: 20060113
  Transmission Date: 20060701
  Serious: Yes (Death)
  Sender: FDA-Public Use
  Company Number: 2005EN000270

PATIENT
  Age: 8 Year
  Sex: Female

DRUGS (2)
  1. ADAGEN [Suspect]
     Indication: ENZYME ABNORMALITY
     Dosage: 30 IU/KG;QW; IM
     Route: 030
     Dates: start: 19910101, end: 20000101
  2. IMMUNE GLOBULIN INTRAVENOUS (HUMAN) [Concomitant]

REACTIONS (5)
  - ADENOVIRUS INFECTION [None]
  - BONE MARROW TRANSPLANT [None]
  - IMMUNODEFICIENCY [None]
  - INFECTION [None]
  - MULTI-ORGAN FAILURE [None]
